FAERS Safety Report 7960077-3 (Version None)
Quarter: 2011Q4

REPORT INFORMATION
  Report Type: 
  Country: None (occurrence: None)
  Receive Date: 20111206
  Receipt Date: 20111129
  Transmission Date: 20120403
  Serious: Yes (Other)
  Sender: FDA-Public Use
  Company Number: CHPA2011US017068

PATIENT
  Age: 65 Year
  Sex: Female

DRUGS (1)
  1. BENEFIBER W/ WHEAT DEXTRIN [Suspect]
     Indication: NUTRITIONAL SUPPORT
     Dosage: PER LABEL
     Route: 048
     Dates: end: 20111101

REACTIONS (1)
  - BLOOD CHOLESTEROL INCREASED [None]
